FAERS Safety Report 24899071 (Version 1)
Quarter: 2025Q1

REPORT INFORMATION
  Report Type: Spontaneous
  Country: CN (occurrence: CN)
  Receive Date: 20250129
  Receipt Date: 20250129
  Transmission Date: 20250409
  Serious: Yes (Other)
  Sender: ROCHE
  Company Number: CN-ROCHE-10000186561

PATIENT
  Age: 50 Year
  Sex: Female

DRUGS (6)
  1. BEVACIZUMAB [Suspect]
     Active Substance: BEVACIZUMAB
     Indication: Angiosarcoma
     Route: 065
     Dates: start: 20220922
  2. EPIRUBICIN [Suspect]
     Active Substance: EPIRUBICIN
     Indication: Angiosarcoma
     Route: 065
     Dates: start: 20220926
  3. IFOSFAMIDE [Suspect]
     Active Substance: IFOSFAMIDE
     Indication: Angiosarcoma
     Route: 065
     Dates: start: 20220926
  4. PACLITAXEL [Suspect]
     Active Substance: PACLITAXEL
     Indication: Angiosarcoma
     Route: 065
     Dates: start: 20220926
  5. CATEQUENTINIB [Suspect]
     Active Substance: CATEQUENTINIB
     Indication: Angiosarcoma
     Route: 065
     Dates: start: 20220926
  6. METHYLPREDNISOLONE [Concomitant]
     Active Substance: METHYLPREDNISOLONE
     Indication: Organising pneumonia

REACTIONS (2)
  - Myelosuppression [Unknown]
  - Disease progression [Unknown]
